FAERS Safety Report 11104744 (Version 2)
Quarter: 2015Q2

REPORT INFORMATION
  Report Type: Report from Study
  Country: JP (occurrence: JP)
  Receive Date: 20150511
  Receipt Date: 20150604
  Transmission Date: 20150821
  Serious: Yes (Death, Other)
  Sender: FDA-Public Use
  Company Number: JP-OTSUKA PHARMACEUTICAL CO.-JP-2015-11538

PATIENT

DRUGS (32)
  1. LASIX M [Concomitant]
     Active Substance: FUROSEMIDE
     Dosage: 20 MG/DAY
     Route: 042
     Dates: start: 20150207, end: 20150207
  2. FUROSEMIDE. [Concomitant]
     Active Substance: FUROSEMIDE
     Indication: PRODUCT USED FOR UNKNOWN INDICATION
     Dosage: 60 MG/DAY
     Route: 048
     Dates: end: 20150207
  3. MALFA [Concomitant]
     Indication: PRODUCT USED FOR UNKNOWN INDICATION
     Dosage: 30 ML/DAY
     Route: 048
     Dates: end: 20150207
  4. NEO-MINOPHAGEN C [Concomitant]
     Active Substance: AMMONIUM GLYCYRRHIZATE
     Dosage: 60 ML/DAY
     Route: 042
     Dates: start: 20141225, end: 20141225
  5. MS REISHIPPU [Concomitant]
     Active Substance: CAMPHOR\MENTHOL\METHYL SALICYLATE
     Indication: PRODUCT USED FOR UNKNOWN INDICATION
     Dosage: 200 G/DAY
     Dates: start: 20141211, end: 20141225
  6. MS ONSHIPPU [Concomitant]
     Indication: PRODUCT USED FOR UNKNOWN INDICATION
     Dosage: 100 G/DAY
     Dates: start: 20141211, end: 20150109
  7. LASIX M [Concomitant]
     Active Substance: FUROSEMIDE
     Indication: OEDEMA DUE TO HEPATIC DISEASE
     Dosage: 20 MG/DAY
     Route: 042
     Dates: start: 20141222, end: 20141222
  8. LASIX M [Concomitant]
     Active Substance: FUROSEMIDE
     Dosage: 20 MG/DAY
     Route: 042
     Dates: start: 20141230, end: 20141230
  9. NEO-MINOPHAGEN C [Concomitant]
     Active Substance: AMMONIUM GLYCYRRHIZATE
     Dosage: 60 ML/DAY
     Route: 042
     Dates: start: 20141211, end: 20141211
  10. LASIX M [Concomitant]
     Active Substance: FUROSEMIDE
     Dosage: 20 MG/DAY
     Route: 042
     Dates: start: 20141225, end: 20141225
  11. TOLVAPTAN [Suspect]
     Active Substance: TOLVAPTAN
     Indication: OEDEMA DUE TO HEPATIC DISEASE
     Dosage: 7.5 MG, QD
     Route: 048
     Dates: start: 20141118, end: 20150208
  12. PIARLE [Concomitant]
     Indication: PRODUCT USED FOR UNKNOWN INDICATION
     Dosage: 30 ML/DAY
     Route: 048
     Dates: end: 20150207
  13. LOXOPROFEN [Concomitant]
     Active Substance: LOXOPROFEN
     Indication: PRODUCT USED FOR UNKNOWN INDICATION
     Dosage: 120 MG/DAY
     Route: 048
     Dates: start: 20140109, end: 20150205
  14. ALBUMIN [Concomitant]
     Active Substance: ALBUMIN (HUMAN)
     Dosage: 100 ML/DAY
     Route: 042
     Dates: start: 20150207, end: 20150208
  15. NEO-MINOPHAGEN C [Concomitant]
     Active Substance: AMMONIUM GLYCYRRHIZATE
     Dosage: 60 ML/DAY
     Route: 042
     Dates: start: 20150115, end: 20150115
  16. NADIC [Concomitant]
     Indication: PRODUCT USED FOR UNKNOWN INDICATION
     Dosage: 15 MG/DAY
     Route: 048
     Dates: end: 20150207
  17. AMINOLEBAN EN POWDER [Concomitant]
     Active Substance: AMINO ACIDS
     Indication: PRODUCT USED FOR UNKNOWN INDICATION
     Dosage: 50 G/DAY
     Route: 048
     Dates: end: 20150207
  18. ALBUMIN [Concomitant]
     Active Substance: ALBUMIN (HUMAN)
     Indication: SUPPLEMENTATION THERAPY
     Dosage: 100 ML/DAY
     Route: 042
     Dates: start: 20141113, end: 20141115
  19. ALBUMIN [Concomitant]
     Active Substance: ALBUMIN (HUMAN)
     Dosage: 50 ML/DAY
     Route: 042
     Dates: start: 20141225, end: 20141225
  20. ALBUMIN [Concomitant]
     Active Substance: ALBUMIN (HUMAN)
     Dosage: 100 ML/DAY
     Route: 042
     Dates: start: 20141230, end: 20141230
  21. CRAVIT [Concomitant]
     Active Substance: LEVOFLOXACIN
     Indication: PRODUCT USED FOR UNKNOWN INDICATION
     Dosage: 250 MG/DAY
     Route: 048
     Dates: start: 20150131, end: 20150205
  22. NEXIUM CONTROL [Concomitant]
     Active Substance: ESOMEPRAZOLE MAGNESIUM
     Indication: PRODUCT USED FOR UNKNOWN INDICATION
     Dosage: 20 MG/DAY
     Route: 048
     Dates: end: 20150207
  23. NEO-MINOPHAGEN C [Concomitant]
     Active Substance: AMMONIUM GLYCYRRHIZATE
     Dosage: 60 ML/DAY
     Route: 042
     Dates: start: 20150122, end: 20150122
  24. URSO DS [Concomitant]
     Indication: PRODUCT USED FOR UNKNOWN INDICATION
     Dosage: 600 MG/DAY
     Route: 048
     Dates: end: 20150207
  25. BRANUTE [Concomitant]
     Indication: PRODUCT USED FOR UNKNOWN INDICATION
     Dosage: 14.19 G/DAY
     Route: 048
     Dates: end: 20150207
  26. NEO-MINOPHAGEN C [Concomitant]
     Active Substance: AMMONIUM GLYCYRRHIZATE
     Dosage: 60 ML/DAY
     Route: 042
     Dates: start: 20141218, end: 20141218
  27. MUCOSOLVAN [Concomitant]
     Active Substance: AMBROXOL\CLENBUTEROL
     Indication: PRODUCT USED FOR UNKNOWN INDICATION
     Dosage: 45 MG/DAY
     Route: 048
     Dates: start: 20150115, end: 20150207
  28. SPIRONOLACTONE. [Concomitant]
     Active Substance: SPIRONOLACTONE
     Indication: PRODUCT USED FOR UNKNOWN INDICATION
     Dosage: 25 MG/DAY
     Route: 048
     Dates: end: 20150207
  29. ALBUMIN [Concomitant]
     Active Substance: ALBUMIN (HUMAN)
     Indication: OEDEMA DUE TO HEPATIC DISEASE
     Dosage: 50 ML/DAY
     Route: 042
     Dates: start: 20141222, end: 20141222
  30. HEPARINOID [Concomitant]
     Active Substance: CHONDROITIN SULFATE (BOVINE)
     Indication: PRODUCT USED FOR UNKNOWN INDICATION
     Dosage: 25 G/DAY
     Route: 061
     Dates: start: 20141126, end: 20141228
  31. NEO-MINOPHAGEN C [Concomitant]
     Active Substance: AMMONIUM GLYCYRRHIZATE
     Indication: PRODUCT USED FOR UNKNOWN INDICATION
     Dosage: 60 ML/DAY
     Route: 042
     Dates: start: 20141204, end: 20141204
  32. NEO-MINOPHAGEN C [Concomitant]
     Active Substance: AMMONIUM GLYCYRRHIZATE
     Dosage: 60 ML/DAY
     Route: 042
     Dates: start: 20150129, end: 20150129

REACTIONS (3)
  - Liver carcinoma ruptured [Unknown]
  - Dysphagia [Unknown]
  - Hepatic cirrhosis [Fatal]
